FAERS Safety Report 19043913 (Version 6)
Quarter: 2021Q2

REPORT INFORMATION
  Report Type: Spontaneous
  Country: CO (occurrence: CO)
  Receive Date: 20210322
  Receipt Date: 20210617
  Transmission Date: 20210717
  Serious: Yes (Hospitalization, Other)
  Sender: FDA-Public Use
  Company Number: CO-PFIZER INC-2020329536

PATIENT
  Age: 61 Year
  Sex: Female

DRUGS (7)
  1. ZOLEDRONIC ACID [Concomitant]
     Active Substance: ZOLEDRONIC ACID
     Dosage: UNK
     Dates: start: 2019
  2. REAMPLA [Suspect]
     Active Substance: PALBOCICLIB
     Dosage: 125 MG, CYCLIC (21 DAYS AND REST 7 DAYS)
     Dates: end: 202011
  3. ZOLEDRONIC ACID [Concomitant]
     Active Substance: ZOLEDRONIC ACID
     Indication: CHEMOTHERAPY
     Dosage: UNK, EVERY 3 MONTHS
     Dates: start: 201903
  4. REAMPLA [Suspect]
     Active Substance: PALBOCICLIB
     Indication: BREAST CANCER METASTATIC
     Dosage: 125 MG
     Dates: start: 2017
  5. REAMPLA [Suspect]
     Active Substance: PALBOCICLIB
     Dosage: 125 MG, CYCLIC (21 DAYS, REST 7 DAYS)
     Route: 048
     Dates: start: 2019
  6. DENOSUMAB HOSPIRA [Concomitant]
     Active Substance: DENOSUMAB
     Indication: CHEMOTHERAPY
     Dosage: UNK (3 MONTHS)
     Dates: start: 201903
  7. LETROZOLE. [Concomitant]
     Active Substance: LETROZOLE
     Dosage: UNK
     Dates: start: 2019

REACTIONS (38)
  - Cancer pain [Unknown]
  - Decreased appetite [Unknown]
  - Pain in extremity [Unknown]
  - Genital pain [Unknown]
  - Stress [Unknown]
  - Walking aid user [Unknown]
  - Condition aggravated [Unknown]
  - Diarrhoea [Not Recovered/Not Resolved]
  - Crying [Unknown]
  - Vomiting [Unknown]
  - Gait inability [Unknown]
  - Renal cyst [Unknown]
  - Anorectal discomfort [Unknown]
  - Tremor [Not Recovered/Not Resolved]
  - COVID-19 [Recovered/Resolved with Sequelae]
  - Bone pain [Unknown]
  - Hypoacusis [Recovered/Resolved]
  - Headache [Recovering/Resolving]
  - Hypoaesthesia [Unknown]
  - Cough [Unknown]
  - Vertigo [Unknown]
  - Abdominal pain upper [Unknown]
  - Spinal pain [Unknown]
  - Anxiety [Unknown]
  - Nausea [Unknown]
  - Speech disorder [Unknown]
  - Product prescribing issue [Unknown]
  - Dizziness [Unknown]
  - Arthralgia [Not Recovered/Not Resolved]
  - Ear infection [Unknown]
  - Proctalgia [Unknown]
  - Depression [Unknown]
  - Memory impairment [Recovered/Resolved]
  - Neoplasm progression [Unknown]
  - Fatigue [Unknown]
  - Pain [Unknown]
  - Pruritus [Unknown]
  - Musculoskeletal discomfort [Unknown]

NARRATIVE: CASE EVENT DATE: 2019
